FAERS Safety Report 19063312 (Version 1)
Quarter: 2021Q1

REPORT INFORMATION
  Report Type: Spontaneous
  Country: FR (occurrence: FR)
  Receive Date: 20210326
  Receipt Date: 20210326
  Transmission Date: 20210420
  Serious: Yes (Hospitalization)
  Sender: FDA-Public Use
  Company Number: NVSC2021FR060838

PATIENT
  Age: 66 Year
  Sex: Female

DRUGS (1)
  1. PIQRAY [Suspect]
     Active Substance: ALPELISIB
     Indication: INVASIVE LOBULAR BREAST CARCINOMA
     Dosage: 300 MG, QD
     Route: 048
     Dates: start: 20210212, end: 20210222

REACTIONS (6)
  - Hyponatraemia [Recovered/Resolved]
  - Hyperglycaemia [Recovered/Resolved]
  - Rash erythematous [Recovered/Resolved]
  - Abdominal pain [Recovered/Resolved]
  - Nausea [Recovered/Resolved]
  - Vomiting [Recovered/Resolved]

NARRATIVE: CASE EVENT DATE: 20210212
